FAERS Safety Report 7827217-8 (Version None)
Quarter: 2011Q4

REPORT INFORMATION
  Report Type: 
  Country: None (occurrence: None)
  Receive Date: 20111020
  Receipt Date: 20111007
  Transmission Date: 20120403
  Serious: Yes (Other)
  Sender: FDA-Public Use
  Company Number: JP-CUBIST-2011S1000686

PATIENT
  Age: 90 Year
  Sex: Female

DRUGS (3)
  1. CUBICIN [Suspect]
     Indication: SEPSIS
     Route: 042
     Dates: start: 20110922, end: 20111001
  2. VANCOMYCIN HCL [Concomitant]
     Indication: PRODUCT USED FOR UNKNOWN INDICATION
     Dosage: DOSE UNIT:U UNKNOWN
     Route: 065
  3. TEICOPLANIN [Concomitant]
     Indication: PRODUCT USED FOR UNKNOWN INDICATION
     Dosage: DOSE UNIT:U UNKNOWN
     Route: 065

REACTIONS (1)
  - DRUG ERUPTION [None]
